FAERS Safety Report 21672303 (Version 1)
Quarter: 2022Q4

REPORT INFORMATION
  Report Type: Other
  Country: AU (occurrence: AU)
  Receive Date: 20221202
  Receipt Date: 20221202
  Transmission Date: 20230113
  Serious: Yes (Other)
  Sender: FDA-Public Use
  Company Number: AU-ASTELLAS-2022US033689

PATIENT
  Age: 59 Year
  Sex: Male

DRUGS (7)
  1. TACROLIMUS [Suspect]
     Active Substance: TACROLIMUS
     Indication: Graft versus host disease
     Dosage: UNK UNK, UNKNOWN FREQ.
     Route: 065
  2. THALIDOMIDE [Suspect]
     Active Substance: THALIDOMIDE
     Indication: Graft versus host disease
     Dosage: UNK UNK, UNKNOWN FREQ.
     Route: 065
  3. PREDNISOLONE [Suspect]
     Active Substance: PREDNISOLONE
     Indication: Graft versus host disease
     Dosage: UNK UNK, UNKNOWN FREQ.
     Route: 065
  4. MYCOPHENOLATE MOFETIL [Suspect]
     Active Substance: MYCOPHENOLATE MOFETIL
     Indication: Graft versus host disease
     Dosage: UNK UNK, UNKNOWN FREQ.
     Route: 065
  5. METHOTREXATE [Suspect]
     Active Substance: METHOTREXATE
     Indication: Graft versus host disease
     Dosage: UNK UNK, UNKNOWN FREQ.
     Route: 065
  6. CYCLOSPORINE [Suspect]
     Active Substance: CYCLOSPORINE
     Indication: Graft versus host disease
     Dosage: UNK UNK, UNKNOWN FREQ.
     Route: 065
  7. PSORALEN [Suspect]
     Active Substance: PSORALEN
     Indication: Product used for unknown indication
     Dosage: UNK UNK, UNKNOWN FREQ.
     Route: 065

REACTIONS (3)
  - Graft versus host disease [Unknown]
  - Scleroderma [Unknown]
  - Product use in unapproved indication [Unknown]
